FAERS Safety Report 5453983-5 (Version None)
Quarter: 2007Q3

REPORT INFORMATION
  Report Type: 
  Country: None (occurrence: None)
  Receive Date: 20070917
  Receipt Date: 20070905
  Transmission Date: 20080115
  Serious: Yes (Hospitalization)
  Sender: FDA-Public Use
  Company Number: GB-AMGEN-US240860

PATIENT
  Sex: Female
  Weight: 64.2 kg

DRUGS (2)
  1. ENBREL [Suspect]
     Indication: RHEUMATOID ARTHRITIS
     Route: 058
  2. PARACETAMOL [Concomitant]
     Dosage: UNKNOWN DOSE AS NEED
     Route: 065

REACTIONS (1)
  - LYMPHOID TISSUE HYPERPLASIA [None]
